FAERS Safety Report 5577151-1 (Version None)
Quarter: 2007Q4

REPORT INFORMATION
  Report Type: 
  Country: None (occurrence: None)
  Receive Date: 20071228
  Receipt Date: 20071218
  Transmission Date: 20080405
  Serious: Yes (Hospitalization, Other)
  Sender: FDA-Public Use
  Company Number: US-PFIZER INC-2007085504

PATIENT
  Sex: Male
  Weight: 122 kg

DRUGS (9)
  1. SUTENT [Suspect]
     Indication: METASTATIC RENAL CELL CARCINOMA
     Route: 048
     Dates: start: 20051223
  2. FLEXERIL [Concomitant]
     Route: 048
     Dates: start: 20070928, end: 20071002
  3. DARVOCET [Concomitant]
     Route: 048
     Dates: start: 20071002, end: 20071003
  4. CIPROFLOXACIN [Concomitant]
     Route: 048
     Dates: start: 20070821, end: 20070830
  5. PERCOCET [Concomitant]
     Indication: HYPERTENSION
     Route: 048
     Dates: start: 20071002, end: 20071008
  6. LEVAQUIN [Concomitant]
     Route: 042
     Dates: start: 20071009, end: 20071009
  7. LEVAQUIN [Concomitant]
     Route: 042
     Dates: start: 20071005, end: 20071021
  8. MAGNESIUM CITRATE [Concomitant]
     Route: 048
     Dates: start: 20071005, end: 20071014
  9. COZAAR [Concomitant]
     Route: 048
     Dates: start: 20071009, end: 20071015

REACTIONS (7)
  - ABDOMINAL PAIN [None]
  - CARCINOID TUMOUR [None]
  - DIVERTICULITIS [None]
  - ENTEROVESICAL FISTULA [None]
  - HYPERCALCAEMIA [None]
  - HYPONATRAEMIA [None]
  - URINARY TRACT INFECTION [None]
